FAERS Safety Report 5207197-4 (Version None)
Quarter: 2007Q1

REPORT INFORMATION
  Report Type: 
  Country: None (occurrence: None)
  Receive Date: 20070112
  Receipt Date: 20070102
  Transmission Date: 20070707
  Serious: Yes (Hospitalization)
  Sender: FDA-Public Use
  Company Number: FR-GLAXOSMITHKLINE-B0430398A

PATIENT
  Age: 66 Year
  Sex: Male
  Weight: 55 kg

DRUGS (13)
  1. SERETIDE DISKUS [Suspect]
     Indication: CHRONIC OBSTRUCTIVE PULMONARY DISEASE
     Dosage: 1PUFF TWICE PER DAY
     Route: 055
     Dates: start: 20040301, end: 20060101
  2. SERETIDE DISKUS [Suspect]
     Indication: CONDITION AGGRAVATED
     Dosage: 1PUFF TWICE PER DAY
     Route: 055
     Dates: start: 20040301, end: 20060101
  3. KALETRA [Suspect]
     Indication: HIV INFECTION
     Dosage: 2UNIT THREE TIMES PER DAY
     Route: 048
     Dates: start: 20020601
  4. INVIRASE [Concomitant]
     Indication: HIV INFECTION
     Dosage: 1000MG TWICE PER DAY
     Route: 048
     Dates: start: 20050201
  5. BACTRIM [Concomitant]
     Dosage: 1UNIT PER DAY
  6. TENORMIN [Concomitant]
     Dosage: 50MG TWICE PER DAY
  7. CACIT D3 [Concomitant]
     Dosage: 1TAB PER DAY
  8. PRAVASTATIN [Concomitant]
     Dosage: 20MG PER DAY
  9. HYPERIUM [Concomitant]
     Dosage: 1UNIT TWICE PER DAY
  10. AMLOR [Concomitant]
     Dosage: 5MG TWICE PER DAY
  11. ASPIRIN [Concomitant]
     Dosage: 75MG PER DAY
  12. TRIATEC [Concomitant]
     Dosage: 5MG PER DAY
  13. INIPOMP [Concomitant]

REACTIONS (19)
  - ADRENAL INSUFFICIENCY [None]
  - AMYOTROPHY [None]
  - BONE PAIN [None]
  - CENTRAL OBESITY [None]
  - CUSHING'S SYNDROME [None]
  - DEPRESSION [None]
  - DIABETES MELLITUS INSULIN-DEPENDENT [None]
  - DRUG INTERACTION [None]
  - HERPES OESOPHAGITIS [None]
  - HYPERLACTACIDAEMIA [None]
  - HYPERTENSION [None]
  - HYPERTRIGLYCERIDAEMIA [None]
  - METABOLIC SYNDROME [None]
  - MITOCHONDRIAL CYTOPATHY [None]
  - OESOPHAGEAL CANDIDIASIS [None]
  - OSTEOPOROSIS [None]
  - PURPURA [None]
  - SKIN FRAGILITY [None]
  - SPINAL COMPRESSION FRACTURE [None]
